FAERS Safety Report 7035128-3 (Version None)
Quarter: 2010Q4

REPORT INFORMATION
  Report Type: 
  Country: None (occurrence: None)
  Receive Date: 20101008
  Receipt Date: 20100930
  Transmission Date: 20110411
  Serious: Yes (Other)
  Sender: FDA-Public Use
  Company Number: CHPA2010US15648

PATIENT
  Age: 66 Year
  Sex: Male
  Weight: 117.91 kg

DRUGS (1)
  1. 4 WAY FAST ACTING NASAL SPRAY (NCH) [Suspect]
     Indication: SINUS DISORDER
     Dosage: UNK, ON AND OFF
     Route: 045

REACTIONS (6)
  - BRAIN OPERATION [None]
  - CSF SHUNT OPERATION [None]
  - CSF VOLUME INCREASED [None]
  - DRUG INEFFECTIVE [None]
  - FALL [None]
  - SKULL FRACTURE [None]
